FAERS Safety Report 8537585-X (Version None)
Quarter: 2012Q3

REPORT INFORMATION
  Report Type: 
  Country: None (occurrence: None)
  Receive Date: 20120725
  Receipt Date: 20120613
  Transmission Date: 20120928
  Serious: No
  Sender: FDA-Public Use
  Company Number: US-ASTRAZENECA-2012SE07600

PATIENT
  Age: 29 Year
  Sex: Male
  Weight: 79.4 kg

DRUGS (9)
  1. SEROQUEL XR [Suspect]
     Indication: ANXIETY
     Route: 048
     Dates: start: 20060101
  2. SEROQUEL XR [Suspect]
     Dosage: 1/2 TABLET
     Route: 048
  3. SEROQUEL XR [Suspect]
     Dosage: 1/2 TABLET
     Route: 048
  4. SEROQUEL XR [Suspect]
     Indication: SLEEP DISORDER
     Route: 048
     Dates: start: 20060101
  5. SEROQUEL XR [Suspect]
     Indication: MIGRAINE
     Route: 048
     Dates: start: 20060101
  6. SEROQUEL XR [Suspect]
     Route: 048
  7. SEROQUEL XR [Suspect]
     Dosage: 1/2 TABLET
     Route: 048
  8. SEROQUEL XR [Suspect]
     Route: 048
  9. SEROQUEL XR [Suspect]
     Route: 048

REACTIONS (7)
  - THERAPEUTIC RESPONSE UNEXPECTED [None]
  - MALAISE [None]
  - OFF LABEL USE [None]
  - SOMNOLENCE [None]
  - DRUG INEFFECTIVE [None]
  - INSOMNIA [None]
  - INTENTIONAL DRUG MISUSE [None]
